FAERS Safety Report 11546917 (Version 2)
Quarter: 2015Q4

REPORT INFORMATION
  Report Type: Spontaneous
  Country: FR (occurrence: FR)
  Receive Date: 20150924
  Receipt Date: 20151019
  Transmission Date: 20160304
  Serious: Yes (Death, Hospitalization, Other)
  Sender: FDA-Public Use
  Company Number: FR-PFIZER INC-2015311291

PATIENT
  Age: 74 Year
  Sex: Female

DRUGS (18)
  1. ARAVA [Suspect]
     Active Substance: LEFLUNOMIDE
     Dosage: 20 MG, 1X/DAY
     Route: 048
     Dates: end: 20150813
  2. SKENAN [Concomitant]
     Active Substance: MORPHINE SULFATE
     Dosage: 30 MG
  3. CALCIDOSE /07357001/ [Concomitant]
     Active Substance: CALCIUM CARBONATE
  4. ESOMEPRAZOLE [Concomitant]
     Active Substance: ESOMEPRAZOLE
  5. XANAX [Concomitant]
     Active Substance: ALPRAZOLAM
     Dosage: 0.25 MG
  6. LYRICA [Suspect]
     Active Substance: PREGABALIN
     Dosage: 200 MG
  7. LEVOTHYROX [Concomitant]
     Active Substance: LEVOTHYROXINE
     Dosage: 100 ?G
  8. COUMADINE [Concomitant]
     Active Substance: WARFARIN SODIUM
     Indication: PULMONARY EMBOLISM
     Dosage: UNK
     Dates: end: 201505
  9. ATENOLOL. [Concomitant]
     Active Substance: ATENOLOL
  10. DESLORATADINE. [Concomitant]
     Active Substance: DESLORATADINE
  11. CITALOPRAM [Concomitant]
     Active Substance: CITALOPRAM HYDROBROMIDE
  12. TERBINAFINE. [Concomitant]
     Active Substance: TERBINAFINE
  13. LONOTEN [Suspect]
     Active Substance: MINOXIDIL
     Dosage: 1.25 MG, 1X/DAY
     Route: 048
     Dates: end: 201508
  14. CORTANCYL [Suspect]
     Active Substance: PREDNISONE
     Dosage: UNK
  15. MONO TILDIEM LP [Concomitant]
     Active Substance: DILTIAZEM HYDROCHLORIDE
     Dosage: 200 MG
  16. FUROSEMIDE. [Concomitant]
     Active Substance: FUROSEMIDE
  17. KALEORID LP [Concomitant]
     Dosage: 1000 MG
  18. COUMADINE [Concomitant]
     Active Substance: WARFARIN SODIUM
     Indication: DEEP VEIN THROMBOSIS

REACTIONS (6)
  - Death [Fatal]
  - Skin necrosis [Recovering/Resolving]
  - Thrombophlebitis superficial [Unknown]
  - Necrobiosis [Unknown]
  - Cholestasis [Unknown]
  - Lymphangiectasia [Unknown]

NARRATIVE: CASE EVENT DATE: 201505
